FAERS Safety Report 21772904 (Version 2)
Quarter: 2023Q1

REPORT INFORMATION
  Report Type: Report from Study
  Country: US (occurrence: US)
  Receive Date: 20221223
  Receipt Date: 20230313
  Transmission Date: 20230418
  Serious: No
  Sender: FDA-Public Use
  Company Number: US-ABBVIE-4209052

PATIENT
  Sex: Female

DRUGS (2)
  1. HUMIRA [Suspect]
     Active Substance: ADALIMUMAB
     Indication: Rheumatoid arthritis
     Dosage: FORM STRENGTH: 40 MG?CF
     Route: 058
     Dates: start: 20221223
  2. SIMPONI [Concomitant]
     Active Substance: GOLIMUMAB
     Indication: Product used for unknown indication
     Dosage: INJECTION

REACTIONS (5)
  - Pain in extremity [Unknown]
  - Pain [Recovered/Resolved]
  - Headache [Unknown]
  - Arthralgia [Unknown]
  - Head discomfort [Unknown]
